FAERS Safety Report 17038349 (Version 1)
Quarter: 2019Q4

REPORT INFORMATION
  Report Type: Spontaneous
  Country: US (occurrence: US)
  Receive Date: 20191115
  Receipt Date: 20191115
  Transmission Date: 20200122
  Serious: Yes (Hospitalization)
  Sender: FDA-Public Use
  Company Number: US-UNITED THERAPEUTICS-UNT-2019-016137

PATIENT
  Age: 63 Year
  Sex: Female
  Weight: 51.7 kg

DRUGS (3)
  1. REMODULIN [Suspect]
     Active Substance: TREPROSTINIL
     Indication: PULMONARY ARTERIAL HYPERTENSION
     Dosage: 0.0045 ?G/KG, CONTINUING
     Route: 058
     Dates: start: 20190927
  2. REMODULIN [Suspect]
     Active Substance: TREPROSTINIL
     Indication: PULMONARY ARTERIAL HYPERTENSION
     Dosage: UNK, CONTINUING
     Route: 058
  3. REMODULIN [Suspect]
     Active Substance: TREPROSTINIL
     Dosage: 0.0063 ?G/KG, CONTINUING
     Route: 058
     Dates: start: 2019

REACTIONS (8)
  - Paraesthesia [Unknown]
  - Fluid overload [Unknown]
  - Diarrhoea [Recovered/Resolved]
  - Infusion site pain [Unknown]
  - Fluid retention [Unknown]
  - Hypoxia [Unknown]
  - Infusion site pruritus [Unknown]
  - Infusion site erythema [Unknown]

NARRATIVE: CASE EVENT DATE: 2019
